FAERS Safety Report 10904348 (Version 2)
Quarter: 2015Q1

REPORT INFORMATION
  Report Type: Spontaneous
  Country: CH (occurrence: CH)
  Receive Date: 20150311
  Receipt Date: 20150313
  Transmission Date: 20150721
  Serious: Yes (Hospitalization, Other)
  Sender: FDA-Public Use
  Company Number: CH-PFIZER INC-2015080708

PATIENT
  Age: 74 Year
  Sex: Female

DRUGS (5)
  1. COVERSUM N [Concomitant]
     Active Substance: PERINDOPRIL
     Dosage: 5 MG, 1X/DAY
     Route: 048
     Dates: start: 20150117
  2. VENLAFAXINE HCL [Suspect]
     Active Substance: VENLAFAXINE HYDROCHLORIDE
     Dosage: 37.5 MG, 1X/DAY
     Route: 048
  3. CLEXANE [Concomitant]
     Active Substance: ENOXAPARIN SODIUM
     Dosage: 40 MG, 1X/DAY
     Route: 058
  4. AMLODIPINE [Concomitant]
     Active Substance: AMLODIPINE BESYLATE
     Dosage: 5 ML, 1X/DAY
     Route: 041
  5. MADOPAR [Concomitant]
     Active Substance: BENSERAZIDE HYDROCHLORIDE\LEVODOPA
     Dosage: 125 MG, 4X/DAY
     Route: 048

REACTIONS (4)
  - Back pain [Unknown]
  - Urinary retention [Recovered/Resolved]
  - Lumbar spinal stenosis [Unknown]
  - Spinal column stenosis [Unknown]

NARRATIVE: CASE EVENT DATE: 2014
